FAERS Safety Report 16442282 (Version 1)
Quarter: 2019Q2

REPORT INFORMATION
  Report Type: Report from Study
  Country: None (occurrence: US)
  Receive Date: 20190617
  Receipt Date: 20190617
  Transmission Date: 20190711
  Serious: No
  Sender: FDA-Public Use
  Company Number: US-US WORLDMEDS, LLC-USW201903-000517

PATIENT
  Age: 77 Year
  Sex: Male
  Weight: 80.73 kg

DRUGS (15)
  1. APOKYN [Suspect]
     Active Substance: APOMORPHINE HYDROCHLORIDE
     Indication: PARKINSON^S DISEASE
     Route: 058
     Dates: start: 20180905
  2. IRON [Concomitant]
     Active Substance: IRON
  3. ULTRACET [Concomitant]
     Active Substance: ACETAMINOPHEN\TRAMADOL HYDROCHLORIDE
  4. CARB/LEVO [Concomitant]
     Active Substance: CARBIDOPA\LEVODOPA
  5. GLYCOPYRROLATE. [Concomitant]
     Active Substance: GLYCOPYRROLATE
  6. ROPINIROLE. [Concomitant]
     Active Substance: ROPINIROLE
  7. VITAMIN B12 [Concomitant]
     Active Substance: CYANOCOBALAMIN
  8. VITAMIN D3 [Concomitant]
     Active Substance: CHOLECALCIFEROL
  9. ALEVE [Concomitant]
     Active Substance: NAPROXEN SODIUM
  10. LORATADINE. [Concomitant]
     Active Substance: LORATADINE
  11. LASIX [Concomitant]
     Active Substance: FUROSEMIDE
  12. TAMSULOSIN [Concomitant]
     Active Substance: TAMSULOSIN
  13. ASA [Concomitant]
     Active Substance: ASPIRIN
  14. BACLOFEN. [Concomitant]
     Active Substance: BACLOFEN
  15. GABAPENTIN. [Concomitant]
     Active Substance: GABAPENTIN

REACTIONS (2)
  - Injection site nodule [Recovered/Resolved]
  - Therapeutic product effect incomplete [Recovered/Resolved]

NARRATIVE: CASE EVENT DATE: 201809
